FAERS Safety Report 6783872-5 (Version None)
Quarter: 2010Q2

REPORT INFORMATION
  Report Type: 
  Country: None (occurrence: None)
  Receive Date: 20100622
  Receipt Date: 20100614
  Transmission Date: 20101027
  Serious: Yes (Death)
  Sender: FDA-Public Use
  Company Number: US-PFIZER INC-2010074303

PATIENT
  Sex: Female

DRUGS (4)
  1. REVATIO [Suspect]
     Indication: PULMONARY HYPERTENSION
     Dosage: 20 MG, 3X/DAY
  2. REVATIO [Suspect]
     Indication: CARDIAC FAILURE CONGESTIVE
  3. REVATIO [Suspect]
     Indication: CHRONIC OBSTRUCTIVE PULMONARY DISEASE
  4. REVATIO [Suspect]
     Indication: CARDIAC DISORDER

REACTIONS (1)
  - DEATH [None]
